FAERS Safety Report 9325076 (Version 2)
Quarter: 2013Q3

REPORT INFORMATION
  Report Type: Spontaneous
  Country: FR (occurrence: None)
  Receive Date: 20130530
  Receipt Date: 20130924
  Transmission Date: 20140515
  Serious: Yes (Other)
  Sender: FDA-Public Use
  Company Number: AG-2013-1957

PATIENT
  Age: 6 Year
  Sex: Female

DRUGS (8)
  1. LANVIS [Suspect]
     Dosage: 60 MG (60 MG 1 IN 1 D) ORAL
     Route: 048
     Dates: start: 20130212, end: 20130303
  2. METHOTREXATE [Suspect]
     Route: 037
     Dates: start: 20121003, end: 20130211
  3. ARACYTINE [Suspect]
     Route: 037
     Dates: start: 20121030, end: 20130211
  4. DOXORUBICINE [Suspect]
     Dosage: 25 MBQ/ SECONDE (UNKNOWN), INTRAVENOUS
     Route: 042
     Dates: start: 20130102, end: 20130104
  5. KIDROLASE [Suspect]
     Dosage: 6200 UG/KG, ACCORDING TO CYCLE (UNKNOWN)
     Dates: start: 20121003, end: 20130104
  6. ELDISINE [Suspect]
     Dosage: 3MBQ, ACCORDING TO CYCLE
     Dates: start: 20130102, end: 20130104
  7. ETOPHOS (ETOPOSIDE) [Concomitant]
  8. HYDROCORTISONE (HYDROCORTISONE) [Concomitant]

REACTIONS (1)
  - Leukoencephalopathy [None]
